FAERS Safety Report 10004079 (Version 3)
Quarter: 2014Q2

REPORT INFORMATION
  Report Type: Spontaneous
  Country: AU (occurrence: AU)
  Receive Date: 20140312
  Receipt Date: 20140417
  Transmission Date: 20141212
  Serious: Yes (Other)
  Sender: FDA-Public Use
  Company Number: AU-009507513-1312AUS001507

PATIENT
  Age: 75 Year
  Sex: Male

DRUGS (5)
  1. RIBAVIRIN [Suspect]
     Indication: CHRONIC HEPATITIS C
     Dosage: 1200 MG
     Route: 048
  2. RIBAVIRIN [Suspect]
     Dosage: 800 MG, UNK
     Route: 048
  3. TELAPREVIR [Suspect]
     Indication: CHRONIC HEPATITIS C
     Dosage: 750 MG, TID
  4. INTERFERON (UNSPECIFIED) [Suspect]
     Indication: CHRONIC HEPATITIS C
     Dosage: 180 MICROGRAM, UNK
  5. INTERFERON (UNSPECIFIED) [Suspect]
     Dosage: 150 MICROGRAM, UNK

REACTIONS (1)
  - Renal impairment [Recovered/Resolved]
